FAERS Safety Report 10060983 (Version 2)
Quarter: 2014Q2

REPORT INFORMATION
  Report Type: Report from Study
  Country: CA (occurrence: CA)
  Receive Date: 20140405
  Receipt Date: 20140405
  Transmission Date: 20141212
  Serious: Yes (Other)
  Sender: FDA-Public Use
  Company Number: CA-ROCHE-1292211

PATIENT
  Age: 49 Year
  Sex: Female

DRUGS (8)
  1. RITUXAN [Suspect]
     Indication: POLYMYOSITIS
     Dosage: LAST DOSE PRIOR TO SAE WAS ON 08/MAY/2013, INFUSION STOPPED.
     Route: 042
     Dates: start: 20130424
  2. RITUXAN [Suspect]
     Dosage: INFUSION RESTARTED.
     Route: 042
  3. DIPHENHYDRAMINE HCL [Concomitant]
     Route: 048
     Dates: start: 20130424
  4. ACETAMINOPHEN [Concomitant]
     Route: 048
     Dates: start: 20130424
  5. METHYLPREDNISOLONE [Concomitant]
     Route: 042
     Dates: start: 20130424
  6. CYCLOSPORINE [Concomitant]
  7. PREDNISONE [Concomitant]
  8. RIVOTRIL [Concomitant]
     Route: 065

REACTIONS (7)
  - White blood cell count decreased [Unknown]
  - Eye irritation [Recovered/Resolved]
  - Fatigue [Recovered/Resolved]
  - Infusion related reaction [Recovered/Resolved]
  - Off label use [Unknown]
  - Headache [Not Recovered/Not Resolved]
  - Alopecia [Not Recovered/Not Resolved]
